FAERS Safety Report 4777532-X (Version None)
Quarter: 2005Q3

REPORT INFORMATION
  Report Type: 
  Country: None (occurrence: None)
  Receive Date: 20050921
  Receipt Date: 20050908
  Transmission Date: 20060218
  Serious: Yes (Hospitalization)
  Sender: FDA-Public Use
  Company Number: 2005125895

PATIENT
  Age: 67 Year
  Sex: Female

DRUGS (5)
  1. EPIRUBICIN [Suspect]
     Indication: BREAST CANCER METASTATIC
     Dosage: 280 MG/M2 (1 IN 3 WK), INTRAVENOUS
     Route: 042
     Dates: start: 20050824
  2. VINFLUNINE (VINFLUNINE) [Suspect]
     Indication: BREAST CANCER METASTATIC
     Dosage: 75 MG/M2 (1 IN 3 WK), INTRAVENOUS
     Route: 042
     Dates: start: 20050824
  3. ASPIRIN [Concomitant]
  4. ISOSORBIDE MONONITRATE [Concomitant]
  5. VERAPAMIL [Concomitant]

REACTIONS (9)
  - ARTHRALGIA [None]
  - BACK PAIN [None]
  - BLOOD PRESSURE INCREASED [None]
  - BONE PAIN [None]
  - CHEST WALL PAIN [None]
  - METASTASES TO BONE [None]
  - NAUSEA [None]
  - PYREXIA [None]
  - STOMATITIS [None]
